FAERS Safety Report 5101112-X (Version None)
Quarter: 2006Q3

REPORT INFORMATION
  Report Type: 
  Country: None (occurrence: None)
  Receive Date: 20060911
  Receipt Date: 20060905
  Transmission Date: 20061208
  Serious: Yes (Death)
  Sender: FDA-Public Use
  Company Number: PHBS2006JP13545

PATIENT
  Sex: Male

DRUGS (1)
  1. ZOMETA [Suspect]
     Indication: METASTASES TO BONE
     Dosage: 4 MG, UNK
     Route: 041
     Dates: start: 20060701

REACTIONS (2)
  - CACHEXIA [None]
  - HEPATIC FUNCTION ABNORMAL [None]
